FAERS Safety Report 7708671-9 (Version None)
Quarter: 2011Q3

REPORT INFORMATION
  Report Type: 
  Country: None (occurrence: None)
  Receive Date: 20110825
  Receipt Date: 20110818
  Transmission Date: 20111222
  Serious: Yes (Disabling)
  Sender: FDA-Public Use
  Company Number: US-ENDO PHARMACEUTICALS INC.-VANT20110045

PATIENT
  Sex: Male
  Weight: 103.51 kg

DRUGS (1)
  1. VANTAS [Suspect]
     Route: 058

REACTIONS (1)
  - HYPERSENSITIVITY [None]
